FAERS Safety Report 6134901-3 (Version None)
Quarter: 2009Q1

REPORT INFORMATION
  Report Type: 
  Country: None (occurrence: None)
  Receive Date: 20090327
  Receipt Date: 20090317
  Transmission Date: 20090719
  Serious: Yes (Other)
  Sender: FDA-Public Use
  Company Number: US-ELI_LILLY_AND_COMPANY-US200903004569

PATIENT
  Age: 46 Year
  Sex: Female

DRUGS (9)
  1. CYMBALTA [Suspect]
     Indication: FIBROMYALGIA
     Dosage: 60 MG, DAILY (1/D)
     Dates: start: 20080101
  2. THYROID TAB [Concomitant]
  3. CLARITIN-D [Concomitant]
  4. PRILOSEC [Concomitant]
  5. REQUIP [Concomitant]
  6. LOVASTIN [Concomitant]
  7. ESTRADIOL [Concomitant]
  8. SKELAXIN [Concomitant]
  9. RESTORIL [Concomitant]

REACTIONS (1)
  - THYROID CANCER [None]
